FAERS Safety Report 23671691 (Version 2)
Quarter: 2024Q3

REPORT INFORMATION
  Report Type: Report from Study
  Country: PA (occurrence: PA)
  Receive Date: 20240326
  Receipt Date: 20240702
  Transmission Date: 20241016
  Serious: Yes (Other)
  Sender: BIOGEN
  Company Number: PA-BIOGEN-2024BI01256801

PATIENT
  Sex: Female
  Weight: 89.81 kg

DRUGS (6)
  1. AVONEX [Suspect]
     Active Substance: INTERFERON BETA-1A
     Indication: Relapsing multiple sclerosis
     Route: 050
     Dates: start: 2014
  2. AVONEX [Suspect]
     Active Substance: INTERFERON BETA-1A
     Route: 050
     Dates: start: 2016
  3. AVONEX [Suspect]
     Active Substance: INTERFERON BETA-1A
  4. AVONEX [Suspect]
     Active Substance: INTERFERON BETA-1A
  5. LEVOTHYROXINE [Concomitant]
     Active Substance: LEVOTHYROXINE\LEVOTHYROXINE SODIUM
     Indication: Hypothyroidism
     Dosage: 1 DAILY IN THE MORNING, ON AN EMPTY STOMACH, SINCE 2015 OR 2016 AND CONTINUES.
     Route: 050
     Dates: start: 2015
  6. AMITRIPTYLINE [Concomitant]
     Active Substance: AMITRIPTYLINE
     Indication: Migraine
     Dosage: ONE IN THE MORNING AND ONE AT NIGHT, SINCE 2023 AND CONTINUES.
     Route: 050
     Dates: start: 2023

REACTIONS (4)
  - Diabetes mellitus [Not Recovered/Not Resolved]
  - Coordination abnormal [Unknown]
  - Memory impairment [Unknown]
  - Initial insomnia [Unknown]

NARRATIVE: CASE EVENT DATE: 20140101
